FAERS Safety Report 9319610 (Version 18)
Quarter: 2016Q2

REPORT INFORMATION
  Report Type: Spontaneous
  Country: US (occurrence: US)
  Receive Date: 20130530
  Receipt Date: 20160422
  Transmission Date: 20160815
  Serious: Yes (Hospitalization, Other)
  Sender: FDA-Public Use
  Company Number: US-GLAXOSMITHKLINE-A1012140A

PATIENT
  Age: 45 Year
  Sex: Female
  Weight: 61.4 kg

DRUGS (13)
  1. FLOLAN [Suspect]
     Active Substance: EPOPROSTENOL SODIUM
     Dosage: UNK
  2. FLOLAN [Suspect]
     Active Substance: EPOPROSTENOL SODIUM
     Dosage: 33 NG/KG/MIN
     Route: 042
     Dates: start: 20000602
  3. FLOLAN [Suspect]
     Active Substance: EPOPROSTENOL SODIUM
     Dosage: 32.5 NG/KG/MIN, 45 NG/ML CONC, 62 ML/DAY, CO
     Route: 042
  4. ADCIRCA [Concomitant]
     Active Substance: TADALAFIL
  5. LETAIRIS [Suspect]
     Active Substance: AMBRISENTAN
     Indication: PRODUCT USED FOR UNKNOWN INDICATION
     Dosage: UNK UNK, U
  6. COUMADIN [Concomitant]
     Active Substance: WARFARIN SODIUM
  7. LETAIRIS [Concomitant]
     Active Substance: AMBRISENTAN
  8. FLOLAN [Suspect]
     Active Substance: EPOPROSTENOL SODIUM
     Dosage: UNK
  9. FLOLAN [Suspect]
     Active Substance: EPOPROSTENOL SODIUM
     Indication: PULMONARY ARTERIAL HYPERTENSION
     Dosage: 32.5 NG/KG/MIN, CO
     Route: 042
     Dates: start: 20000602
  10. FLOLAN [Suspect]
     Active Substance: EPOPROSTENOL SODIUM
     Dosage: 22 DF, CO
     Dates: start: 20000619
  11. FLOLAN [Suspect]
     Active Substance: EPOPROSTENOL SODIUM
     Dosage: UNK
  12. FLOLAN [Suspect]
     Active Substance: EPOPROSTENOL SODIUM
     Dosage: 33 NG/KG/MIN
     Route: 042
     Dates: start: 20000602
  13. TRACLEER [Concomitant]
     Active Substance: BOSENTAN

REACTIONS (19)
  - Nasopharyngitis [Unknown]
  - Dyspnoea [Unknown]
  - Haemoptysis [Recovered/Resolved]
  - Surgery [Unknown]
  - Pain in jaw [Unknown]
  - Rash [Unknown]
  - Pulmonary hypertension [Not Recovered/Not Resolved]
  - Erythema [Unknown]
  - Rash macular [Unknown]
  - Device breakage [Recovered/Resolved]
  - Malaise [Not Recovered/Not Resolved]
  - Catheter site erythema [Unknown]
  - Catheter site swelling [Unknown]
  - Device leakage [Recovered/Resolved]
  - Catheter placement [Recovered/Resolved]
  - Drug dose omission [Unknown]
  - Catheter site pain [Unknown]
  - Sinusitis [Unknown]
  - Therapy cessation [Unknown]

NARRATIVE: CASE EVENT DATE: 201501
